FAERS Safety Report 24382595 (Version 2)
Quarter: 2024Q4

REPORT INFORMATION
  Report Type: Spontaneous
  Country: US (occurrence: US)
  Receive Date: 20241001
  Receipt Date: 20241003
  Transmission Date: 20250115
  Serious: No
  Sender: NOVARTIS
  Company Number: US-002147023-NVSC2024US193793

PATIENT
  Age: 8 Year
  Sex: Female

DRUGS (1)
  1. KYMRIAH [Suspect]
     Active Substance: TISAGENLECLEUCEL
     Indication: Acute lymphocytic leukaemia
     Dosage: UNK (3.6EP CAR T/KG) (ONE SINGLE DOSE)
     Route: 042
     Dates: start: 20240409, end: 20240409

REACTIONS (1)
  - Remission not achieved [Unknown]
